FAERS Safety Report 25090375 (Version 1)
Quarter: 2025Q1

REPORT INFORMATION
  Report Type: Spontaneous
  Country: US (occurrence: None)
  Receive Date: 20250318
  Receipt Date: 20250318
  Transmission Date: 20250409
  Serious: Yes (Other)
  Sender: FDA-CTU
  Company Number: None

PATIENT
  Age: 31 Year
  Sex: Female
  Weight: 56.7 kg

DRUGS (1)
  1. MIRALAX [Suspect]
     Active Substance: POLYETHYLENE GLYCOL 3350
     Indication: Bowel preparation
     Dates: start: 20240331, end: 20240331

REACTIONS (10)
  - Lethargy [None]
  - Anger [None]
  - Irritability [None]
  - Depression [None]
  - Coordination abnormal [None]
  - Tunnel vision [None]
  - Vision blurred [None]
  - Nausea [None]
  - Headache [None]
  - Crying [None]
